FAERS Safety Report 16303159 (Version 2)
Quarter: 2019Q3

REPORT INFORMATION
  Report Type: Spontaneous
  Country: US (occurrence: US)
  Receive Date: 20190513
  Receipt Date: 20190806
  Transmission Date: 20191004
  Serious: Yes (Hospitalization, Other)
  Sender: FDA-Public Use
  Company Number: US-ASTRAZENECA-2018SF27021

PATIENT
  Age: 60 Year
  Sex: Male

DRUGS (33)
  1. OMEPRAZOLE. [Suspect]
     Active Substance: OMEPRAZOLE
     Indication: GASTROOESOPHAGEAL REFLUX DISEASE
     Dosage: GENERIC
     Route: 065
     Dates: start: 2018
  2. PREDNISONE. [Concomitant]
     Active Substance: PREDNISONE
     Indication: INFLAMMATION
  3. NYSTATIN. [Concomitant]
     Active Substance: NYSTATIN
     Indication: INFECTION
  4. CYCLOBENZAPRINE. [Concomitant]
     Active Substance: CYCLOBENZAPRINE
     Indication: PAIN
  5. TRAVATAN [Concomitant]
     Active Substance: TRAVOPROST
  6. POLYETHYLENE GLYCOL [Concomitant]
     Active Substance: POLYETHYLENE GLYCOLS
  7. GABAPENTIN. [Concomitant]
     Active Substance: GABAPENTIN
  8. PRILOSEC OTC [Suspect]
     Active Substance: OMEPRAZOLE MAGNESIUM
     Indication: GASTROOESOPHAGEAL REFLUX DISEASE
     Route: 048
     Dates: start: 2003
  9. AZITHROMYCIN ANHYDROUS. [Concomitant]
     Active Substance: AZITHROMYCIN ANHYDROUS
     Indication: INFECTION
  10. PREDNISONE. [Concomitant]
     Active Substance: PREDNISONE
     Indication: INFLAMMATION
  11. OXYCODONE [Concomitant]
     Active Substance: OXYCODONE
  12. METOPROLOL. [Concomitant]
     Active Substance: METOPROLOL
  13. SERTRALINE [Concomitant]
     Active Substance: SERTRALINE HYDROCHLORIDE
     Indication: DEPRESSION
  14. NAPROXEN. [Concomitant]
     Active Substance: NAPROXEN
     Indication: PAIN
  15. FOLIC ACID. [Concomitant]
     Active Substance: FOLIC ACID
     Indication: ANAEMIA
  16. HYDROCHLOROTHIAZIDE. [Concomitant]
     Active Substance: HYDROCHLOROTHIAZIDE
  17. TUMS [Concomitant]
     Active Substance: CALCIUM CARBONATE
  18. OMEPRAZOLE. [Suspect]
     Active Substance: OMEPRAZOLE
     Indication: DYSPEPSIA
     Dosage: GENERIC
     Route: 065
     Dates: start: 2018
  19. HYDROCODONE [Concomitant]
     Active Substance: HYDROCODONE
     Indication: PAIN
  20. AMOXICILLIN. [Concomitant]
     Active Substance: AMOXICILLIN
  21. TRAMADOL. [Concomitant]
     Active Substance: TRAMADOL
  22. ONDANSETRON [Concomitant]
     Active Substance: ONDANSETRON
  23. MECLIZINE [Concomitant]
     Active Substance: MECLIZINE HYDROCHLORIDE
  24. DICLOFENAC [Concomitant]
     Active Substance: DICLOFENAC
  25. PRILOSEC OTC [Suspect]
     Active Substance: OMEPRAZOLE MAGNESIUM
     Indication: GASTROOESOPHAGEAL REFLUX DISEASE
     Route: 048
     Dates: start: 2003, end: 2019
  26. ARIPIPRAZOLE. [Concomitant]
     Active Substance: ARIPIPRAZOLE
  27. TOBRAMYCIN. [Concomitant]
     Active Substance: TOBRAMYCIN
  28. MELOXICAM. [Concomitant]
     Active Substance: MELOXICAM
  29. ACETAMINOPHEN. [Concomitant]
     Active Substance: ACETAMINOPHEN
  30. ALPRAZOLAM. [Concomitant]
     Active Substance: ALPRAZOLAM
  31. NITROSTAT [Concomitant]
     Active Substance: NITROGLYCERIN
  32. PRAMIPEXOLE. [Concomitant]
     Active Substance: PRAMIPEXOLE
  33. ROLAIDS [Concomitant]
     Active Substance: CALCIUM CARBONATE\MAGNESIUM HYDROXIDE

REACTIONS (3)
  - Acute kidney injury [Not Recovered/Not Resolved]
  - Chronic kidney disease [Not Recovered/Not Resolved]
  - Renal failure [Unknown]

NARRATIVE: CASE EVENT DATE: 2015
